FAERS Safety Report 20412726 (Version 1)
Quarter: 2022Q1

REPORT INFORMATION
  Report Type: Other
  Country: US (occurrence: None)
  Receive Date: 20220201
  Receipt Date: 20220201
  Transmission Date: 20220423
  Serious: Yes (Hospitalization, Other)
  Sender: FDA-Public Use
  Company Number: US-Invatech-000212

PATIENT
  Age: 14 Year
  Sex: Female

DRUGS (10)
  1. AMANTADINE [Interacting]
     Active Substance: AMANTADINE
     Indication: Attention deficit hyperactivity disorder
     Dosage: 100 MG TWICE A DAY FOR ATLEAST 6 MONTHS
  2. BUPROPION HYDROCHLORIDE [Interacting]
     Active Substance: BUPROPION HYDROCHLORIDE
     Indication: Depressive symptom
     Dosage: EXTENDED-RELEASE 150 MG DAILY ABOUT 2 WEEKS
  3. CLONIDINE [Suspect]
     Active Substance: CLONIDINE
     Indication: Attention deficit hyperactivity disorder
     Dosage: 0.2 MG AT BED TIME
  4. TOPIRAMATE [Suspect]
     Active Substance: TOPIRAMATE
     Indication: Attention deficit hyperactivity disorder
     Dosage: 150 MG AT BED TIME
  5. AMANTADINE [Interacting]
     Active Substance: AMANTADINE
     Indication: Autism spectrum disorder
     Dosage: 100 MG TWICE A DAY FOR ATLEAST 6 MONTHS
  6. AMANTADINE [Interacting]
     Active Substance: AMANTADINE
     Indication: Generalised anxiety disorder
     Dosage: 100 MG TWICE A DAY FOR ATLEAST 6 MONTHS
  7. CLONIDINE [Suspect]
     Active Substance: CLONIDINE
     Indication: Autism spectrum disorder
     Dosage: 0.2 MG AT BED TIME
  8. CLONIDINE [Suspect]
     Active Substance: CLONIDINE
     Indication: Generalised anxiety disorder
     Dosage: 0.2 MG AT BED TIME
  9. TOPIRAMATE [Suspect]
     Active Substance: TOPIRAMATE
     Indication: Autism spectrum disorder
     Dosage: 150 MG AT BED TIME
  10. TOPIRAMATE [Suspect]
     Active Substance: TOPIRAMATE
     Indication: Generalised anxiety disorder
     Dosage: 150 MG AT BED TIME

REACTIONS (4)
  - Neurotoxicity [Recovered/Resolved]
  - Off label use [Unknown]
  - Drug interaction [Unknown]
  - Psychiatric symptom [Recovered/Resolved]
